FAERS Safety Report 5140097-7 (Version None)
Quarter: 2006Q4

REPORT INFORMATION
  Report Type: 
  Country: None (occurrence: None)
  Receive Date: 20061024
  Receipt Date: 20061004
  Transmission Date: 20070319
  Serious: Yes (Hospitalization)
  Sender: FDA-Public Use
  Company Number: US200605006852

PATIENT
  Age: 39 Year
  Sex: Female
  Weight: 80.7 kg

DRUGS (2)
  1. ZYPREXA [Suspect]
     Dosage: 2.5 MG; 20 MG
     Dates: start: 19960101, end: 20060101
  2. ZIPRASIDONE HCL [Concomitant]

REACTIONS (4)
  - DIABETES MELLITUS [None]
  - HYPERTENSION [None]
  - RECTAL HAEMORRHAGE [None]
  - SYNCOPE [None]
